FAERS Safety Report 7708586-6 (Version None)
Quarter: 2011Q3

REPORT INFORMATION
  Report Type: 
  Country: None (occurrence: None)
  Receive Date: 20110825
  Receipt Date: 20110318
  Transmission Date: 20111222
  Serious: No
  Sender: FDA-Public Use
  Company Number: US-BAYER-2011-024597

PATIENT
  Age: 46 Year
  Sex: Female

DRUGS (2)
  1. MIRENA [Suspect]
     Indication: CONTRACEPTION
     Dosage: 20 ?G, CONT
     Route: 015
     Dates: start: 20101215, end: 20110321
  2. MIRENA [Suspect]
     Indication: HYPOMENORRHOEA

REACTIONS (14)
  - ABDOMINAL DISTENSION [None]
  - WEIGHT INCREASED [None]
  - EMOTIONAL DISTRESS [None]
  - CARDIAC FLUTTER [None]
  - ALOPECIA [None]
  - LOSS OF LIBIDO [None]
  - FATIGUE [None]
  - CHEST DISCOMFORT [None]
  - ABDOMINAL PAIN [None]
  - ACNE [None]
  - DEPRESSION [None]
  - SKIN HYPERPIGMENTATION [None]
  - MOOD ALTERED [None]
  - FACIAL PAIN [None]
